FAERS Safety Report 5566487-6 (Version None)
Quarter: 2007Q4

REPORT INFORMATION
  Report Type: 
  Country: None (occurrence: None)
  Receive Date: 20071219
  Receipt Date: 20071211
  Transmission Date: 20080405
  Serious: Yes (Hospitalization)
  Sender: FDA-Public Use
  Company Number: FR-AVENTIS-200713996FR

PATIENT
  Age: 84 Year
  Sex: Female

DRUGS (8)
  1. LASIX [Suspect]
     Route: 048
     Dates: end: 20070129
  2. VENTOLIN [Suspect]
     Route: 055
     Dates: end: 20070101
  3. PULMICORT [Concomitant]
     Route: 055
  4. ATROVENT [Concomitant]
     Route: 055
  5. BRICANYL [Concomitant]
     Route: 055
  6. IMOVANE [Concomitant]
     Indication: INSOMNIA
     Route: 048
     Dates: end: 20070129
  7. HEXAQUINE [Concomitant]
     Route: 048
     Dates: end: 20070129
  8. SPECIAFOLDINE [Concomitant]
     Route: 048

REACTIONS (2)
  - DYSPNOEA [None]
  - HYPOKALAEMIA [None]
